FAERS Safety Report 7582443-0 (Version None)
Quarter: 2011Q2

REPORT INFORMATION
  Report Type: 
  Country: None (occurrence: None)
  Receive Date: 20110630
  Receipt Date: 20110621
  Transmission Date: 20111010
  Serious: No
  Sender: FDA-Public Use
  Company Number: US-PFIZER INC-2011138230

PATIENT
  Sex: Male
  Weight: 74.83 kg

DRUGS (5)
  1. BETOPTIC S [Concomitant]
     Indication: GLAUCOMA
     Dosage: 1 DROP EACH EYE, 2X/DAY
     Route: 047
  2. SIMVASTATIN [Concomitant]
     Indication: BLOOD CHOLESTEROL INCREASED
     Dosage: 40 MG AND 80 MG EVERY ALTERNATE DAY
     Route: 048
  3. ALPRAZOLAM [Concomitant]
     Indication: SLEEP DISORDER
  4. XALATAN [Suspect]
     Indication: GLAUCOMA
     Dosage: 1 DROP LEFT EYE, DAILY
     Route: 047
     Dates: start: 20110616
  5. ALPRAZOLAM [Concomitant]
     Indication: ANXIETY
     Dosage: 1 MG, DAILY
     Route: 048

REACTIONS (2)
  - PAROSMIA [None]
  - INSOMNIA [None]
